FAERS Safety Report 14402802 (Version 2)
Quarter: 2018Q2

REPORT INFORMATION
  Report Type: Spontaneous
  Country: US (occurrence: US)
  Receive Date: 20180117
  Receipt Date: 20180416
  Transmission Date: 20180711
  Serious: No
  Sender: FDA-Public Use
  Company Number: US-AMGEN-USASP2018003878

PATIENT
  Age: 75 Year
  Sex: Male

DRUGS (3)
  1. ENTRESTO [Concomitant]
     Active Substance: SACUBITRIL\VALSARTAN
     Dosage: UNK
  2. CORLANOR [Suspect]
     Active Substance: IVABRADINE HYDROCHLORIDE
     Dosage: 2 AND A HALF MG ONCE DAILY (ONE HALF OF A 5 MG TABLET ONCE DAILY)
     Route: 065
  3. CORLANOR [Suspect]
     Active Substance: IVABRADINE HYDROCHLORIDE
     Indication: CARDIAC FAILURE
     Dosage: 5 MG, BID
     Route: 065
     Dates: start: 2016

REACTIONS (5)
  - Musculoskeletal discomfort [Unknown]
  - Hypotension [Unknown]
  - Abdominal discomfort [Unknown]
  - General physical health deterioration [Unknown]
  - Off label use [Unknown]
